FAERS Safety Report 6308612-5 (Version None)
Quarter: 2009Q3

REPORT INFORMATION
  Report Type: 
  Country: None (occurrence: None)
  Receive Date: 20090813
  Receipt Date: 20090715
  Transmission Date: 20100115
  Serious: Yes (Other)
  Sender: FDA-Public Use
  Company Number: JP-SANOFI-SYNTHELABO-A01200907066

PATIENT
  Age: 66 Year
  Sex: Male
  Weight: 60 kg

DRUGS (4)
  1. RADICUT [Concomitant]
     Indication: CEREBRAL INFARCTION
     Route: 042
     Dates: start: 20090416, end: 20090426
  2. SLONNON [Concomitant]
     Indication: CEREBRAL INFARCTION
     Route: 042
     Dates: start: 20090416, end: 20090418
  3. SLONNON [Concomitant]
     Route: 042
     Dates: start: 20090419, end: 20090422
  4. PLAVIX [Suspect]
     Indication: CEREBRAL INFARCTION
     Route: 048
     Dates: start: 20090416, end: 20090501

REACTIONS (1)
  - TRANSAMINASES INCREASED [None]
